FAERS Safety Report 6765661-0 (Version None)
Quarter: 2010Q2

REPORT INFORMATION
  Report Type: 
  Country: None (occurrence: None)
  Receive Date: 20100609
  Receipt Date: 20100526
  Transmission Date: 20101027
  Serious: Yes (Other)
  Sender: FDA-Public Use
  Company Number: 2010AM002170

PATIENT
  Age: 52 Year
  Sex: Female

DRUGS (12)
  1. SYMLIN [Suspect]
     Indication: TYPE 2 DIABETES MELLITUS
     Dosage: 120 MCG; TID; SC 60 MCG; TID; SC
     Route: 058
     Dates: start: 20100225, end: 20100101
  2. SYMLIN [Suspect]
     Indication: TYPE 2 DIABETES MELLITUS
     Dosage: 120 MCG; TID; SC 60 MCG; TID; SC
     Route: 058
     Dates: start: 20100101, end: 20100323
  3. LEVEMIR [Concomitant]
  4. COUMADIN [Concomitant]
  5. AMARYL [Concomitant]
  6. BENICAR [Concomitant]
  7. TOPROL-XL [Concomitant]
  8. EFFEXOR [Concomitant]
  9. XANAX [Concomitant]
  10. CRESTOR [Concomitant]
  11. TRICOR [Concomitant]
  12. VICODIN [Concomitant]

REACTIONS (6)
  - ACTIVATED PARTIAL THROMBOPLASTIN TIME PROLONGED [None]
  - DIARRHOEA [None]
  - INTERNATIONAL NORMALISED RATIO INCREASED [None]
  - MALAISE [None]
  - NAUSEA [None]
  - PROTHROMBIN TIME PROLONGED [None]
